FAERS Safety Report 6679964-1 (Version None)
Quarter: 2010Q2

REPORT INFORMATION
  Report Type: 
  Country: None (occurrence: None)
  Receive Date: 20100413
  Receipt Date: 20100318
  Transmission Date: 20101027
  Serious: Yes (Hospitalization)
  Sender: FDA-Public Use
  Company Number: US-BAXTER-2010BH004551

PATIENT
  Age: 31 Year
  Sex: Male
  Weight: 75 kg

DRUGS (8)
  1. HEPARIN SODIUM INJECTION [Suspect]
     Indication: ANTICOAGULANT THERAPY
     Route: 058
     Dates: start: 20090101
  2. HUMALOG [Concomitant]
     Indication: DIABETES MELLITUS
     Route: 065
  3. LANTUS [Concomitant]
     Indication: DIABETES MELLITUS
     Route: 065
  4. NEURONTIN [Concomitant]
     Indication: DRUG USE FOR UNKNOWN INDICATION
     Route: 065
  5. AMBIEN [Concomitant]
     Indication: DRUG USE FOR UNKNOWN INDICATION
     Route: 065
  6. LISINOPRIL [Concomitant]
     Indication: DRUG USE FOR UNKNOWN INDICATION
     Route: 065
  7. HUMALOG [Concomitant]
     Route: 058
  8. HUMALOG [Concomitant]
     Route: 058

REACTIONS (4)
  - DIZZINESS [None]
  - INJECTION SITE HAEMORRHAGE [None]
  - NAUSEA [None]
  - PAIN [None]
